FAERS Safety Report 11716922 (Version 2)
Quarter: 2015Q4

REPORT INFORMATION
  Report Type: Spontaneous
  Country: US (occurrence: US)
  Receive Date: 20151104
  Receipt Date: 20151120
  Transmission Date: 20160304
  Serious: No
  Sender: FDA-Public Use
  Company Number: US-ELI_LILLY_AND_COMPANY-US201103005157

PATIENT
  Age: 75 Year
  Sex: Female

DRUGS (1)
  1. FORTEO [Suspect]
     Active Substance: TERIPARATIDE
     Indication: OSTEOPOROSIS
     Dosage: 20 UG, WEEKLY (1/W)
     Dates: start: 201101, end: 20110304

REACTIONS (9)
  - Dental discomfort [Recovered/Resolved]
  - Oral pain [Recovered/Resolved]
  - Logorrhoea [Recovering/Resolving]
  - Tooth fracture [Recovered/Resolved with Sequelae]
  - Toothache [Recovered/Resolved]
  - Balance disorder [Recovering/Resolving]
  - Dizziness [Recovering/Resolving]
  - Bone pain [Recovered/Resolved]
  - Inappropriate schedule of drug administration [Recovered/Resolved]

NARRATIVE: CASE EVENT DATE: 201101
